FAERS Safety Report 4933059-3 (Version None)
Quarter: 2006Q1

REPORT INFORMATION
  Report Type: 
  Country: None (occurrence: None)
  Receive Date: 20060306
  Receipt Date: 20060223
  Transmission Date: 20060701
  Serious: Yes (Disabling)
  Sender: FDA-Public Use
  Company Number: PHBS2006IT03149

PATIENT
  Age: 62 Year
  Sex: Female

DRUGS (4)
  1. ZOMETA [Suspect]
     Indication: METASTASES TO BONE
     Dosage: 4 MG, QMO
     Route: 042
     Dates: start: 20030618, end: 20051201
  2. VINORELBINE [Concomitant]
  3. MEGACE [Concomitant]
  4. MODURETIC 5-50 [Concomitant]

REACTIONS (3)
  - BONE DISORDER [None]
  - OSTEONECROSIS [None]
  - PARAESTHESIA [None]
